FAERS Safety Report 13456037 (Version 1)
Quarter: 2017Q2

REPORT INFORMATION
  Report Type: Spontaneous
  Country: CH (occurrence: CH)
  Receive Date: 20170418
  Receipt Date: 20170418
  Transmission Date: 20170830
  Serious: Yes (Other)
  Sender: FDA-Public Use
  Company Number: PHHY2017CH057001

PATIENT
  Sex: Male

DRUGS (1)
  1. GILENYA [Suspect]
     Active Substance: FINGOLIMOD HYDROCHLORIDE
     Indication: RELAPSING-REMITTING MULTIPLE SCLEROSIS
     Dosage: 1 DF, QD
     Route: 048
     Dates: start: 2011, end: 20170413

REACTIONS (4)
  - Obesity [Unknown]
  - Crohn^s disease [Not Recovered/Not Resolved]
  - Type 2 diabetes mellitus [Unknown]
  - Diverticulitis [Unknown]

NARRATIVE: CASE EVENT DATE: 201704
